FAERS Safety Report 5582083-9 (Version None)
Quarter: 2008Q1

REPORT INFORMATION
  Report Type: 
  Country: None (occurrence: None)
  Receive Date: 20080104
  Receipt Date: 20071221
  Transmission Date: 20080703
  Serious: Yes (Hospitalization)
  Sender: FDA-Public Use
  Company Number: CA-GENENTECH-253565

PATIENT
  Sex: Male
  Weight: 67 kg

DRUGS (8)
  1. BEVACIZUMAB [Suspect]
     Indication: COLORECTAL CANCER METASTATIC
     Dosage: 548 MG, Q3W
     Route: 042
     Dates: start: 20071127
  2. CAPECITABINE [Suspect]
     Indication: COLORECTAL CANCER METASTATIC
     Dosage: 1300 MG, BID
     Route: 048
     Dates: start: 20071127
  3. IRINOTECAN [Suspect]
     Indication: COLORECTAL CANCER METASTATIC
     Dosage: 360 MG, Q3W
     Route: 042
     Dates: start: 20071127
  4. CONCOMITANT UNSPECIFIED DRUG [Concomitant]
     Indication: DRUG USE FOR UNKNOWN INDICATION
     Dates: start: 19820615
  5. CONCOMITANT UNSPECIFIED DRUG [Concomitant]
     Dates: start: 19820615
  6. CONCOMITANT UNSPECIFIED DRUG [Concomitant]
     Dates: start: 20071218
  7. RAMIPRIL [Concomitant]
     Indication: DRUG USE FOR UNKNOWN INDICATION
     Dates: start: 19820615
  8. PROCHLORPERAZINE [Concomitant]
     Indication: DRUG USE FOR UNKNOWN INDICATION
     Dates: start: 20071127

REACTIONS (1)
  - SMALL INTESTINAL OBSTRUCTION [None]
